FAERS Safety Report 5102792-5 (Version None)
Quarter: 2006Q3

REPORT INFORMATION
  Report Type: 
  Country: None (occurrence: None)
  Receive Date: 20060907
  Receipt Date: 20060828
  Transmission Date: 20061208
  Serious: Yes (Hospitalization, Disabling)
  Sender: FDA-Public Use
  Company Number: GXKR2006GB05367

PATIENT
  Age: 74 Year
  Sex: Female

DRUGS (1)
  1. CLONIDINE [Suspect]
     Indication: NEURALGIA
     Dosage: ORAL
     Route: 048
     Dates: start: 20040301, end: 20050301

REACTIONS (3)
  - ABASIA [None]
  - GAIT DISTURBANCE [None]
  - REFUSAL OF TREATMENT BY PATIENT [None]
